FAERS Safety Report 6593558-8 (Version None)
Quarter: 2010Q1

REPORT INFORMATION
  Report Type: 
  Country: None (occurrence: None)
  Receive Date: 20100222
  Receipt Date: 20090722
  Transmission Date: 20100710
  Serious: No
  Sender: FDA-Public Use
  Company Number: US-BRISTOL-MYERS SQUIBB COMPANY-14711873

PATIENT
  Age: 60 Year
  Sex: Male
  Weight: 77 kg

DRUGS (3)
  1. ORENCIA [Suspect]
     Indication: RHEUMATOID ARTHRITIS
     Dosage: NO. OF INF:3
     Dates: start: 20090101
  2. METHOTREXATE [Concomitant]
     Dates: end: 20090701
  3. LEFLUNOMIDE [Concomitant]
     Dates: start: 20090701

REACTIONS (1)
  - BURNING SENSATION [None]
